FAERS Safety Report 17324645 (Version 1)
Quarter: 2020Q1

REPORT INFORMATION
  Report Type: Spontaneous
  Country: US (occurrence: US)
  Receive Date: 20200124
  Receipt Date: 20200124
  Transmission Date: 20200409
  Serious: Yes (Other)
  Sender: FDA-Public Use
  Company Number: None

PATIENT
  Age: 39 Year
  Sex: Female
  Weight: 117 kg

DRUGS (10)
  1. PRENATAL MULTIVITAMINS [Concomitant]
     Active Substance: VITAMINS
  2. MOMETASONE INTRANASAL [Concomitant]
  3. DULOXETINE 20 MG [Concomitant]
     Active Substance: DULOXETINE
  4. CETERIZINE [Concomitant]
     Active Substance: CETIRIZINE HYDROCHLORIDE
  5. LEVOTHYROXINE 125 MCG [Concomitant]
     Active Substance: LEVOTHYROXINE SODIUM
  6. IBUPROFEN. [Concomitant]
     Active Substance: IBUPROFEN
  7. ADDERALL [Concomitant]
     Active Substance: AMPHETAMINE ASPARTATE\AMPHETAMINE SULFATE\DEXTROAMPHETAMINE SACCHARATE\DEXTROAMPHETAMINE SULFATE
  8. VITAMIN D 5000 UNITS [Concomitant]
  9. LAMOTRIGINE 100 MG TABLETS [Suspect]
     Active Substance: LAMOTRIGINE
     Indication: DEPRESSION
     Dosage: ?          QUANTITY:90 TABLET(S);?
     Route: 048
     Dates: start: 20200114, end: 20200124
  10. ALBUTEROL INHALER [Concomitant]
     Active Substance: ALBUTEROL

REACTIONS (10)
  - Nausea [None]
  - Muscle spasms [None]
  - Product contamination [None]
  - Gastroenteritis [None]
  - Recalled product administered [None]
  - Loss of consciousness [None]
  - Dizziness [None]
  - Feeling abnormal [None]
  - Retching [None]
  - Product commingling [None]

NARRATIVE: CASE EVENT DATE: 20200114
